FAERS Safety Report 6327847-9 (Version None)
Quarter: 2009Q3

REPORT INFORMATION
  Report Type: 
  Country: None (occurrence: None)
  Receive Date: 20090824
  Receipt Date: 20090818
  Transmission Date: 20100115
  Serious: Yes (Death, Hospitalization)
  Sender: FDA-Public Use
  Company Number: GXKR2009DE09328

PATIENT
  Age: 68 Year
  Sex: Male
  Weight: 63.5 kg

DRUGS (5)
  1. ASPIRIN [Suspect]
     Indication: CORONARY ARTERY DISEASE
     Dosage: 100 MG, ORAL
     Route: 048
     Dates: start: 20010101, end: 20090806
  2. PREDNISOLONE [Suspect]
     Indication: DIARRHOEA
     Dosage: 10 MG, QD, ORAL
     Route: 048
     Dates: start: 20060101, end: 20090809
  3. SIMVASTATIN [Suspect]
     Indication: DYSLIPIDAEMIA
     Dosage: ORAL
     Route: 048
  4. RAMIPRIL [Suspect]
     Indication: HYPERTENSION
     Dosage: 10 MG, QD, ORAL
     Route: 048
     Dates: start: 20020101, end: 20090809
  5. TAMSULOSIN HCL [Concomitant]

REACTIONS (1)
  - ACUTE HEPATIC FAILURE [None]
